FAERS Safety Report 8320618-3 (Version None)
Quarter: 2012Q2

REPORT INFORMATION
  Report Type: 
  Country: None (occurrence: None)
  Receive Date: 20120430
  Receipt Date: 20120424
  Transmission Date: 20120825
  Serious: Yes (Other)
  Sender: FDA-Public Use
  Company Number: US-BAYER-2012-006940

PATIENT
  Age: 27 Year
  Sex: Female
  Weight: 58.05 kg

DRUGS (9)
  1. ZYRTEC [Concomitant]
     Indication: HYPERSENSITIVITY
     Dosage: 1 TAB, DAILY
  2. ADVAIR DISKUS 100/50 [Concomitant]
     Indication: ASTHMA
  3. PROTONIX [Concomitant]
     Dosage: 1 TAB, DAILY
  4. YASMIN [Suspect]
     Indication: CONTRACEPTION
     Dosage: UNK
     Dates: start: 20050101, end: 20060101
  5. ANTIBIOTICS [Concomitant]
     Dosage: UNK UNK, PRN
  6. ASTHMA MEDICATIONS [Concomitant]
     Dosage: UNK
     Dates: start: 20060101
  7. YAZ [Suspect]
     Indication: CONTRACEPTION
     Dosage: UNK
     Dates: start: 20060101, end: 20090820
  8. NSAIDS [Concomitant]
     Dosage: UNK UNK, PRN
  9. VALIUM [Concomitant]
     Indication: ANXIETY
     Dosage: 5 MG, PRN

REACTIONS (4)
  - NAUSEA [None]
  - CHOLECYSTITIS CHRONIC [None]
  - OESOPHAGITIS [None]
  - ABDOMINAL PAIN [None]
